FAERS Safety Report 8943897 (Version 1)
Quarter: 2012Q4

REPORT INFORMATION
  Report Type: 
  Country: US (occurrence: US)
  Receive Date: 20121204
  Receipt Date: 20121204
  Transmission Date: 20130627
  Serious: Yes (Hospitalization)
  Sender: FDA-Public Use
  Company Number: US-US-EMD SERONO, INC.-7179139

PATIENT
  Sex: Female

DRUGS (2)
  1. REBIF [Suspect]
     Indication: MULTIPLE SCLEROSIS
     Dates: start: 20040510, end: 2010
  2. REBIF [Suspect]
     Dates: end: 201211

REACTIONS (3)
  - Decubitus ulcer [Recovering/Resolving]
  - Cellulitis [Recovering/Resolving]
  - Staphylococcal infection [Recovering/Resolving]
